FAERS Safety Report 25928526 (Version 1)
Quarter: 2025Q4

REPORT INFORMATION
  Report Type: Report from Study
  Country: CA (occurrence: CA)
  Receive Date: 20251016
  Receipt Date: 20251016
  Transmission Date: 20260117
  Serious: Yes (Other)
  Sender: CHIESI
  Company Number: CA-CHIESI-2024CHF03504

PATIENT
  Age: 42 Year
  Sex: Female
  Weight: 58 kg

DRUGS (2)
  1. DEFERIPRONE [Suspect]
     Active Substance: DEFERIPRONE
     Indication: Congenital dyserythropoietic anaemia
     Dosage: 1000 MILLIGRAM, BID
     Route: 048
     Dates: start: 20100406, end: 20240530
  2. DEFERIPRONE [Suspect]
     Active Substance: DEFERIPRONE
     Dosage: UNK, TID
     Route: 048
     Dates: start: 20241108

REACTIONS (9)
  - Cardiac disorder [Unknown]
  - Serum ferritin increased [Unknown]
  - Suspected COVID-19 [Not Recovered/Not Resolved]
  - Influenza [Not Recovered/Not Resolved]
  - Nasopharyngitis [Unknown]
  - Pyrexia [Unknown]
  - Off label use [Recovered/Resolved]
  - Product dose omission issue [Not Recovered/Not Resolved]
  - Product dose omission issue [Unknown]

NARRATIVE: CASE EVENT DATE: 20100406
